FAERS Safety Report 5568544-7 (Version None)
Quarter: 2007Q4

REPORT INFORMATION
  Report Type: 
  Country: None (occurrence: None)
  Receive Date: 20071130
  Receipt Date: 20070123
  Transmission Date: 20080405
  Serious: Yes (Other)
  Sender: FDA-Public Use
  Company Number: WAES 0701USA03890

PATIENT
  Age: 45 Year
  Sex: Female
  Weight: 60.782 kg

DRUGS (14)
  1. FOSAMAX [Suspect]
     Indication: OSTEOPOROSIS
     Dosage: 70 MG/WKY/PO
     Route: 048
     Dates: start: 20040621, end: 20060323
  2. COMBIVENT [Concomitant]
  3. CORGARD [Concomitant]
  4. DIFFERIN [Concomitant]
  5. LASIX [Concomitant]
  6. LEVOXYL [Concomitant]
  7. MAXALT [Concomitant]
  8. SINGULAIR [Concomitant]
  9. VICODIN ES [Concomitant]
  10. VOLMAX [Concomitant]
  11. XANAX [Concomitant]
  12. ALLOPURINOL [Concomitant]
  13. POTASSIUM CHLORIDE [Concomitant]
  14. PROGESTERONE [Concomitant]

REACTIONS (11)
  - ANXIETY [None]
  - ASTHMA [None]
  - DEPRESSION [None]
  - INSOMNIA [None]
  - OSTEOMYELITIS [None]
  - OSTEONECROSIS [None]
  - SINUSITIS [None]
  - TOOTH DISORDER [None]
  - TRIGEMINAL NEURALGIA [None]
  - UPPER RESPIRATORY TRACT INFECTION [None]
  - WISDOM TEETH REMOVAL [None]
